FAERS Safety Report 16980434 (Version 1)
Quarter: 2019Q4

REPORT INFORMATION
  Report Type: Spontaneous
  Country: RU (occurrence: RU)
  Receive Date: 20191031
  Receipt Date: 20191031
  Transmission Date: 20200122
  Serious: Yes (Hospitalization, Other)
  Sender: FDA-Public Use
  Company Number: RU-009507513-1910RUS009066

PATIENT
  Age: 49 Year
  Sex: Male
  Weight: 121 kg

DRUGS (10)
  1. TORSEMIDE. [Concomitant]
     Active Substance: TORSEMIDE
     Indication: CARDIAC FAILURE CHRONIC
  2. ZEPATIER [Suspect]
     Active Substance: ELBASVIR\GRAZOPREVIR
     Indication: ANTIVIRAL TREATMENT
     Dosage: UNK
     Route: 048
     Dates: start: 20190829, end: 20190901
  3. TORSEMIDE. [Concomitant]
     Active Substance: TORSEMIDE
     Indication: HYPERTONIA
     Dosage: 5 MILLIGRAM, QD
     Route: 048
  4. BISOPROLOL [Concomitant]
     Active Substance: BISOPROLOL
     Indication: CARDIAC FAILURE CHRONIC
  5. VALSARTAN. [Concomitant]
     Active Substance: VALSARTAN
     Indication: HYPERTONIA
     Dosage: 1 TABLET
     Route: 048
  6. TORSEMIDE. [Concomitant]
     Active Substance: TORSEMIDE
     Indication: OBESITY
  7. VALSARTAN. [Concomitant]
     Active Substance: VALSARTAN
     Indication: OBESITY
  8. BISOPROLOL [Concomitant]
     Active Substance: BISOPROLOL
     Indication: OBESITY
  9. VALSARTAN. [Concomitant]
     Active Substance: VALSARTAN
     Indication: CARDIAC FAILURE CHRONIC
  10. BISOPROLOL [Concomitant]
     Active Substance: BISOPROLOL
     Indication: HYPERTONIA
     Dosage: 5 MILLIGRAM, QD
     Route: 048

REACTIONS (1)
  - Acute myocardial infarction [Recovering/Resolving]

NARRATIVE: CASE EVENT DATE: 20190901
